FAERS Safety Report 24106261 (Version 1)
Quarter: 2024Q3

REPORT INFORMATION
  Report Type: Spontaneous
  Country: US (occurrence: None)
  Receive Date: 20240716
  Receipt Date: 20240716
  Transmission Date: 20241017
  Serious: Yes (Life-Threatening)
  Sender: Public
  Company Number: None

PATIENT
  Age: 82 Year
  Sex: Male
  Weight: 71.2 kg

DRUGS (1)
  1. REGADENOSON [Suspect]
     Active Substance: REGADENOSON
     Dosage: 0.4 MG ONCE INTRAVENOUS
     Route: 042
     Dates: start: 20240708, end: 20240708

REACTIONS (3)
  - Acute myocardial infarction [None]
  - Cerebrovascular accident [None]
  - Unresponsive to stimuli [None]

NARRATIVE: CASE EVENT DATE: 20240708
